FAERS Safety Report 21874135 (Version 7)
Quarter: 2024Q3

REPORT INFORMATION
  Report Type: Spontaneous
  Country: ES (occurrence: ES)
  Receive Date: 20230117
  Receipt Date: 20240812
  Transmission Date: 20241017
  Serious: Yes (Hospitalization, Other)
  Sender: BAUSCH AND LOMB
  Company Number: ES-002147023-NVSC2023ES006455

PATIENT
  Age: 66 Year
  Sex: Male
  Weight: 101 kg

DRUGS (35)
  1. DEXAMETHASONE [Suspect]
     Active Substance: DEXAMETHASONE
     Indication: Cytokine release syndrome
     Dosage: UNK
     Route: 065
     Dates: start: 20230104, end: 20230108
  2. PENTAMIDINE [Concomitant]
     Active Substance: PENTAMIDINE
     Indication: General physical condition
     Dates: start: 20221226, end: 20221226
  3. TETRACYCLINE [Concomitant]
     Active Substance: TETRACYCLINE
     Indication: Antibiotic prophylaxis
  4. DOXICICLIN [Concomitant]
     Indication: General physical condition
     Dates: start: 20221229, end: 20230111
  5. DOXICICLIN [Concomitant]
     Indication: Infection prophylaxis
  6. PUNTUAL [Concomitant]
     Indication: Constipation
     Dates: start: 20221230, end: 20230111
  7. PANTOPRAZOLE SODIUM [Concomitant]
     Active Substance: PANTOPRAZOLE SODIUM
     Indication: Gastrointestinal disorder prophylaxis
  8. HIBOR [Concomitant]
     Indication: Antithrombin III deficiency
     Dates: start: 20221226, end: 20221229
  9. POLARAMINE [Concomitant]
     Active Substance: DEXCHLORPHENIRAMINE MALEATE
     Indication: Premedication
     Dates: start: 20221227, end: 20221227
  10. CAPTOPRIL [Concomitant]
     Active Substance: CAPTOPRIL
     Indication: Prinzmetal angina
     Dates: start: 20230107, end: 20230108
  11. KONAKION [Concomitant]
     Active Substance: PHYTONADIONE
     Indication: General physical condition
     Dates: start: 20221231, end: 20230105
  12. KONAKION [Concomitant]
     Active Substance: PHYTONADIONE
     Indication: Prophylaxis
  13. ZOPICLONE [Concomitant]
     Active Substance: ZOPICLONE
     Indication: General physical condition
     Dates: start: 20221230, end: 20230110
  14. CASENLAX [Concomitant]
     Indication: Constipation
     Dates: start: 20221229, end: 20230111
  15. ATORVASTATIN [Concomitant]
     Active Substance: ATORVASTATIN
     Indication: Blood cholesterol
     Dates: start: 20221229, end: 20230111
  16. DULCOLAX [Concomitant]
     Indication: Constipation prophylaxis
  17. TOCILIZUMAB [Concomitant]
     Active Substance: TOCILIZUMAB
     Indication: Cytokine release syndrome
     Dates: start: 20230103, end: 20230103
  18. TOCILIZUMAB [Concomitant]
     Active Substance: TOCILIZUMAB
     Dates: start: 20230104, end: 20230104
  19. ACETAMINOPHEN [Concomitant]
     Active Substance: ACETAMINOPHEN
     Indication: Cytokine release syndrome
     Dates: start: 20230102, end: 20230104
  20. ACETAMINOPHEN [Concomitant]
     Active Substance: ACETAMINOPHEN
     Indication: Premedication
     Dates: start: 20221227, end: 20230104
  21. METHADONE [Concomitant]
     Active Substance: METHADONE HYDROCHLORIDE
     Indication: Analgesic therapy
     Dates: start: 20221226, end: 20230111
  22. METHADONE [Concomitant]
     Active Substance: METHADONE HYDROCHLORIDE
     Indication: General physical condition
  23. INSULIN NOS [Concomitant]
     Active Substance: INSULIN NOS
     Indication: Product used for unknown indication
  24. LYRICA [Concomitant]
     Active Substance: PREGABALIN
     Indication: Pain prophylaxis
  25. DAPAGLIFLOZIN [Concomitant]
     Active Substance: DAPAGLIFLOZIN
     Indication: Diabetes mellitus
     Dates: start: 2016
  26. NITROLINGUAL [Concomitant]
     Active Substance: NITROGLYCERIN
     Indication: Prinzmetal angina
  27. LEVOFLOXACIN [Concomitant]
     Active Substance: LEVOFLOXACIN
     Indication: General physical condition
     Dates: start: 20230101, end: 20230102
  28. ISOSORBIDE MONONITRATE [Concomitant]
     Active Substance: ISOSORBIDE MONONITRATE
     Indication: General physical condition
     Dates: start: 20221227, end: 20230111
  29. ISOSORBIDE MONONITRATE [Concomitant]
     Active Substance: ISOSORBIDE MONONITRATE
     Indication: Prinzmetal angina
  30. CEFEPIME [Concomitant]
     Active Substance: CEFEPIME HYDROCHLORIDE
     Indication: Cytokine release syndrome
     Dates: start: 20230102, end: 20230109
  31. METFORMIN HYDROCHLORIDE [Concomitant]
     Active Substance: METFORMIN HYDROCHLORIDE
     Indication: Diabetes mellitus
     Dates: start: 20230111
  32. VALTREX [Concomitant]
     Active Substance: VALACYCLOVIR HYDROCHLORIDE
     Indication: Antiviral prophylaxis
  33. FLUCONAZOLE [Concomitant]
     Active Substance: FLUCONAZOLE
     Indication: General physical condition
     Dates: start: 20230101, end: 20230111
  34. NOLOTIL [Concomitant]
     Indication: Cytokine release syndrome
     Dates: start: 20230103, end: 20230103
  35. SIMETHICONE (DIMETHICONE) [Concomitant]
     Active Substance: DIMETHICONE
     Indication: General physical condition
     Dates: start: 20221231, end: 20230111

REACTIONS (1)
  - Diabetic metabolic decompensation [Recovered/Resolved]

NARRATIVE: CASE EVENT DATE: 20230109
